FAERS Safety Report 5981040-8 (Version None)
Quarter: 2008Q4

REPORT INFORMATION
  Report Type: 
  Country: None (occurrence: None)
  Receive Date: 20081205
  Receipt Date: 20081014
  Transmission Date: 20090506
  Serious: No
  Sender: FDA-Public Use
  Company Number: A0751761A

PATIENT
  Age: 36 Year
  Sex: Female

DRUGS (1)
  1. COMMIT [Suspect]
     Route: 002

REACTIONS (3)
  - GLOSSODYNIA [None]
  - NAUSEA [None]
  - ORAL DISCOMFORT [None]
